FAERS Safety Report 23231153 (Version 1)
Quarter: 2023Q4

REPORT INFORMATION
  Report Type: Spontaneous
  Country: US (occurrence: None)
  Receive Date: 20231127
  Receipt Date: 20231127
  Transmission Date: 20240109
  Serious: No
  Sender: FDA-Public Use
  Company Number: 2023A268235

PATIENT
  Sex: Female

DRUGS (3)
  1. FARXIGA [Suspect]
     Active Substance: DAPAGLIFLOZIN PROPANEDIOL
     Indication: Cardiac failure
     Route: 048
  2. ADVIL [Concomitant]
     Active Substance: IBUPROFEN
  3. LOSARTAN [Concomitant]
     Active Substance: LOSARTAN

REACTIONS (1)
  - Swelling face [Unknown]
